FAERS Safety Report 13416240 (Version 2)
Quarter: 2017Q2

REPORT INFORMATION
  Report Type: Report from Study
  Country: US (occurrence: US)
  Receive Date: 20170407
  Receipt Date: 20170418
  Transmission Date: 20170830
  Serious: No
  Sender: FDA-Public Use
  Company Number: US-009507513-1704USA001146

PATIENT
  Age: 72 Year
  Sex: Male

DRUGS (16)
  1. VITAMINS (UNSPECIFIED) [Concomitant]
     Active Substance: VITAMINS
  2. PEMBROLIZUMAB. [Suspect]
     Active Substance: PEMBROLIZUMAB
     Dosage: UNKNOWN DOSE, EVERY 3 WEEKS IV.
     Route: 042
     Dates: start: 20170130, end: 20170130
  3. LIPITOR [Concomitant]
     Active Substance: ATORVASTATIN CALCIUM
  4. PEMBROLIZUMAB. [Suspect]
     Active Substance: PEMBROLIZUMAB
     Dosage: UNKNOWN DOSE, EVERY 3 WEEKS IV.
     Route: 042
     Dates: start: 20170220, end: 20170220
  5. OMEGA-3 MARINE TRIGLYCERIDES [Concomitant]
     Active Substance: FISH OIL
  6. SELENIUM (UNSPECIFIED) [Concomitant]
     Active Substance: SELENIUM
  7. ABILIFY [Concomitant]
     Active Substance: ARIPIPRAZOLE
  8. PEMBROLIZUMAB. [Suspect]
     Active Substance: PEMBROLIZUMAB
     Dosage: UNKNOWN DOSE, EVERY 3 WEEKS IV.
     Route: 042
     Dates: start: 20170403
  9. VITAMIN E [Concomitant]
     Active Substance: .ALPHA.-TOCOPHEROL
  10. PEMBROLIZUMAB. [Suspect]
     Active Substance: PEMBROLIZUMAB
     Dosage: UNKNOWN DOSE, EVERY 3 WEEKS IV.
     Route: 042
     Dates: start: 20170109, end: 20170109
  11. CELEBREX [Concomitant]
     Active Substance: CELECOXIB
  12. PEMBROLIZUMAB. [Suspect]
     Active Substance: PEMBROLIZUMAB
     Dosage: UNKNOWN DOSE, EVERY 3 WEEKS IV.
     Route: 042
     Dates: start: 20170313, end: 20170313
  13. LUVOX [Concomitant]
     Active Substance: FLUVOXAMINE MALEATE
  14. TRAZODONE HYDROCHLORIDE. [Concomitant]
     Active Substance: TRAZODONE HYDROCHLORIDE
     Dosage: UNK, PRN
     Route: 048
  15. SODIUM BICARBONATE. [Concomitant]
     Active Substance: SODIUM BICARBONATE
     Dosage: UNK, QD
     Route: 048
  16. PEMBROLIZUMAB. [Suspect]
     Active Substance: PEMBROLIZUMAB
     Indication: MALIGNANT MELANOMA
     Dosage: UNKNOWN DOSE, EVERY 3 WEEKS IV.
     Route: 042
     Dates: start: 20161219, end: 20161219

REACTIONS (5)
  - Fatigue [Not Recovered/Not Resolved]
  - Cough [Recovered/Resolved]
  - Emotional distress [Not Recovered/Not Resolved]
  - Hepatic enzyme abnormal [Recovered/Resolved]
  - Neuropathy peripheral [Recovered/Resolved]

NARRATIVE: CASE EVENT DATE: 20170112
